FAERS Safety Report 25587977 (Version 2)
Quarter: 2025Q3

REPORT INFORMATION
  Report Type: Report from Study
  Country: US (occurrence: US)
  Receive Date: 20250721
  Receipt Date: 20250729
  Transmission Date: 20251020
  Serious: No
  Sender: AMGEN
  Company Number: US-AMGEN-USASL2025133836

PATIENT
  Age: 60 Year
  Sex: Female
  Weight: 49.4 kg

DRUGS (1)
  1. NEULASTA [Suspect]
     Active Substance: PEGFILGRASTIM
     Indication: Neutropenia
     Route: 065

REACTIONS (3)
  - Accidental exposure to product [Unknown]
  - Device use error [Unknown]
  - Device issue [Unknown]

NARRATIVE: CASE EVENT DATE: 20250704
